FAERS Safety Report 16012408 (Version 1)
Quarter: 2019Q1

REPORT INFORMATION
  Report Type: Spontaneous
  Country: US (occurrence: US)
  Receive Date: 20190227
  Receipt Date: 20190227
  Transmission Date: 20190418
  Serious: No
  Sender: FDA-Public Use
  Company Number: US-TEVA-2019-US-1008562

PATIENT
  Age: 69 Year
  Sex: Male

DRUGS (2)
  1. SILDENAFIL 100MG AVKARE [Suspect]
     Active Substance: SILDENAFIL
     Indication: ERECTILE DYSFUNCTION
  2. SILDENAFIL TEVA [Suspect]
     Active Substance: SILDENAFIL
     Indication: ERECTILE DYSFUNCTION
     Dates: start: 20190129

REACTIONS (5)
  - Vomiting [Unknown]
  - Nausea [Unknown]
  - Drug ineffective [Unknown]
  - Headache [Unknown]
  - Dizziness [Unknown]

NARRATIVE: CASE EVENT DATE: 20190129
